FAERS Safety Report 6068970-6 (Version None)
Quarter: 2009Q1

REPORT INFORMATION
  Report Type: 
  Country: None (occurrence: None)
  Receive Date: 20090206
  Receipt Date: 20090126
  Transmission Date: 20090719
  Serious: Yes (Hospitalization)
  Sender: FDA-Public Use
  Company Number: US-WATSON-2009-00409

PATIENT
  Age: 55 Year
  Sex: Female

DRUGS (2)
  1. LIDOCAINE 1% W/ EPINEPHRINE 1:200,000 [Suspect]
     Indication: HAEMODYNAMIC INSTABILITY
     Dosage: 0.9 MCG/KG/MIN
     Route: 042
  2. VASOPRESSIN [Suspect]
     Indication: HAEMODYNAMIC INSTABILITY
     Dosage: UNK
     Route: 042

REACTIONS (1)
  - INSULIN RESISTANCE [None]
